FAERS Safety Report 8255695-1 (Version None)
Quarter: 2012Q2

REPORT INFORMATION
  Report Type: 
  Country: None (occurrence: None)
  Receive Date: 20120403
  Receipt Date: 20120403
  Transmission Date: 20120825
  Serious: Yes (Life-Threatening)
  Sender: FDA-Public Use
  Company Number: None

PATIENT
  Age: 75 Year
  Sex: Male
  Weight: 91 kg

DRUGS (3)
  1. LEVOFLOXACIN [Concomitant]
     Route: 042
  2. LEVOFLOXACIN [Concomitant]
     Route: 042
  3. CORVERT [Suspect]
     Indication: ATRIAL FIBRILLATION
     Dosage: 1.0 MG
     Route: 042
     Dates: start: 20120329, end: 20120329

REACTIONS (1)
  - VENTRICULAR TACHYCARDIA [None]
